FAERS Safety Report 6239131-2 (Version None)
Quarter: 2009Q2

REPORT INFORMATION
  Report Type: 
  Country: None (occurrence: None)
  Receive Date: 20090617
  Receipt Date: 20080128
  Transmission Date: 20091009
  Serious: No
  Sender: FDA-Public Use
  Company Number: 271748

PATIENT
  Age: 58 Year
  Sex: Female

DRUGS (1)
  1. LEVEMIR [Suspect]
     Indication: TYPE 1 DIABETES MELLITUS
     Dosage: SUBCUTANEOUS
     Route: 058

REACTIONS (4)
  - BLOOD GLUCOSE FLUCTUATION [None]
  - EXPIRED DRUG ADMINISTERED [None]
  - NAUSEA [None]
  - VOMITING [None]
